FAERS Safety Report 14605178 (Version 1)
Quarter: 2018Q1

REPORT INFORMATION
  Report Type: Spontaneous
  Country: HK (occurrence: HK)
  Receive Date: 20180306
  Receipt Date: 20180306
  Transmission Date: 20180509
  Serious: Yes (Other)
  Sender: FDA-Public Use
  Company Number: HK-BIOTEST PHARMACEUTICALS CORPORATION-HK-2018ADM000010

PATIENT

DRUGS (2)
  1. HUMAN IMMUNOGLOBULIN [Suspect]
     Active Substance: HUMAN IMMUNOGLOBULIN G
     Indication: VENTRICULAR TACHYARRHYTHMIA
     Dosage: UNK
     Route: 042
  2. HUMAN IMMUNOGLOBULIN [Suspect]
     Active Substance: HUMAN IMMUNOGLOBULIN G
     Indication: VENTRICULAR DYSFUNCTION

REACTIONS (3)
  - Embolism [Recovered/Resolved]
  - Haemolysis [Recovered/Resolved]
  - Haemoglobinuria [Recovered/Resolved]
